FAERS Safety Report 6742272-4 (Version None)
Quarter: 2010Q2

REPORT INFORMATION
  Report Type: 
  Country: None (occurrence: None)
  Receive Date: 20100524
  Receipt Date: 20100518
  Transmission Date: 20101027
  Serious: Yes (Death, Life-Threatening, Other)
  Sender: FDA-Public Use
  Company Number: 2007SP016954

PATIENT
  Age: 9 Year
  Sex: Male
  Weight: 23 kg

DRUGS (47)
  1. TEMODAL [Suspect]
     Indication: MEDULLOBLASTOMA RECURRENT
     Dosage: 88 MG/M2;QD;PO; 222 MG/M2;QD;PO
     Route: 048
     Dates: start: 20060915, end: 20061026
  2. TEMODAL [Suspect]
     Indication: MEDULLOBLASTOMA RECURRENT
     Dosage: 88 MG/M2;QD;PO; 222 MG/M2;QD;PO
     Route: 048
     Dates: start: 20061128, end: 20061225
  3. TEMODAL [Suspect]
     Indication: MEDULLOBLASTOMA RECURRENT
     Dosage: 88 MG/M2;QD;PO; 222 MG/M2;QD;PO
     Route: 048
     Dates: start: 20070213, end: 20070217
  4. TEMODAL [Suspect]
     Indication: MEDULLOBLASTOMA RECURRENT
     Dosage: 88 MG/M2;QD;PO; 222 MG/M2;QD;PO
     Route: 048
     Dates: start: 20070403, end: 20070407
  5. TEMODAL [Suspect]
     Indication: MEDULLOBLASTOMA RECURRENT
     Dosage: 88 MG/M2;QD;PO; 222 MG/M2;QD;PO
     Route: 048
     Dates: start: 20070507, end: 20070511
  6. TEMODAL [Suspect]
     Indication: MEDULLOBLASTOMA RECURRENT
     Dosage: 88 MG/M2;QD;PO; 222 MG/M2;QD;PO
     Route: 048
     Dates: start: 20070608, end: 20070612
  7. PARAPLATIN [Suspect]
     Indication: MEDULLOBLASTOMA RECURRENT
     Dosage: INDRP
     Dates: start: 20061006, end: 20061027
  8. PARAPLATIN [Suspect]
     Indication: MEDULLOBLASTOMA RECURRENT
     Dosage: INDRP
     Dates: start: 20061128, end: 20061219
  9. PARAPLATIN [Suspect]
     Indication: MEDULLOBLASTOMA RECURRENT
     Dosage: INDRP
     Dates: start: 20070213, end: 20070215
  10. METHOTREXATE [Suspect]
     Indication: MEDULLOBLASTOMA RECURRENT
     Dosage: INDIS
     Dates: start: 20061031, end: 20061103
  11. METHOTREXATE [Suspect]
     Indication: MEDULLOBLASTOMA RECURRENT
     Dosage: INDIS
     Dates: start: 20061212, end: 20061215
  12. ETOPOSIDE [Suspect]
     Indication: MEDULLOBLASTOMA RECURRENT
     Dosage: PO
     Route: 048
     Dates: start: 20070403, end: 20070416
  13. ETOPOSIDE [Suspect]
     Indication: MEDULLOBLASTOMA RECURRENT
     Dosage: PO
     Route: 048
     Dates: start: 20070507, end: 20070513
  14. ETOPOSIDE [Suspect]
     Indication: MEDULLOBLASTOMA RECURRENT
     Dosage: PO
     Route: 048
     Dates: start: 20070608, end: 20070612
  15. COTRIM [Concomitant]
  16. AMLODIN [Concomitant]
  17. RAMELTEON [Concomitant]
  18. ZOFRAN [Concomitant]
  19. NAUZELIN [Concomitant]
  20. DEPAKENE [Concomitant]
  21. DECADRON [Concomitant]
  22. SELBEX [Concomitant]
  23. ZITHROMAX [Concomitant]
  24. FLOMOX [Concomitant]
  25. PRIMPERAN TAB [Concomitant]
  26. LASIX [Concomitant]
  27. NAUZELIN [Concomitant]
  28. ZOFRAN [Concomitant]
  29. ITRIZOLE [Concomitant]
  30. CRAVIT [Concomitant]
  31. DIFLUCAN [Concomitant]
  32. PAXIL [Concomitant]
  33. ZOFRAN [Concomitant]
  34. NAUZELIN [Concomitant]
  35. DECADRON [Concomitant]
  36. LORAZEPAM [Concomitant]
  37. RISUMIC [Concomitant]
  38. LOPEMIN [Concomitant]
  39. PRODIF [Concomitant]
  40. ZOFRAN [Concomitant]
  41. FIRSTCIN [Concomitant]
  42. CANDESARTAN CILEXETIL [Concomitant]
  43. AMLODIN [Concomitant]
  44. CIPROFLOXACIN HCL [Concomitant]
  45. CRAVIT [Concomitant]
  46. PANTOSIN [Concomitant]
  47. ALINAMIN-F [Concomitant]

REACTIONS (9)
  - ANAEMIA [None]
  - LYMPHOCYTE COUNT DECREASED [None]
  - MALIGNANT NEOPLASM PROGRESSION [None]
  - MEDULLOBLASTOMA RECURRENT [None]
  - MENINGITIS STAPHYLOCOCCAL [None]
  - NEUTROPHIL COUNT DECREASED [None]
  - PLATELET COUNT DECREASED [None]
  - SYSTEMIC CANDIDA [None]
  - WHITE BLOOD CELL COUNT DECREASED [None]
